FAERS Safety Report 4283643-8 (Version None)
Quarter: 2004Q1

REPORT INFORMATION
  Report Type: 
  Country: None (occurrence: None)
  Receive Date: 20040202
  Receipt Date: 20030925
  Transmission Date: 20041129
  Serious: Yes (Other)
  Sender: FDA-Public Use
  Company Number: DE-ROCHE-347814

PATIENT
  Age: 21 Year
  Sex: Female
  Weight: 66.5 kg

DRUGS (1)
  1. CELLCEPT [Suspect]
     Dosage: NO REGIMEN PROVIDED.
     Route: 048
     Dates: start: 20010115, end: 20030615

REACTIONS (9)
  - ABORTION SPONTANEOUS [None]
  - COMPLICATIONS OF MATERNAL EXPOSURE TO THERAPEUTIC DRUGS [None]
  - HYPERPARATHYROIDISM [None]
  - HYPERTENSION [None]
  - LUPUS NEPHRITIS [None]
  - MATERNAL DRUGS AFFECTING FOETUS [None]
  - NEPHROGENIC ANAEMIA [None]
  - PREGNANCY [None]
  - RENAL FAILURE [None]
